FAERS Safety Report 7509198-X (Version None)
Quarter: 2011Q2

REPORT INFORMATION
  Report Type: 
  Country: None (occurrence: None)
  Receive Date: 20110527
  Receipt Date: 20110516
  Transmission Date: 20111010
  Serious: Yes (Hospitalization, Other)
  Sender: FDA-Public Use
  Company Number: DE-JNJFOC-20110503832

PATIENT
  Sex: Male
  Weight: 73 kg

DRUGS (13)
  1. BACLOFEN [Concomitant]
     Route: 065
  2. FINASTERIDE [Concomitant]
     Route: 065
  3. DURAGESIC-100 [Suspect]
     Route: 062
     Dates: start: 20110505, end: 20110506
  4. DURAGESIC-100 [Suspect]
     Indication: PRODUCT USED FOR UNKNOWN INDICATION
     Route: 062
  5. OMEPRAZOLE [Concomitant]
     Route: 065
  6. TEMAZEPAM [Concomitant]
     Route: 065
  7. LYRICA [Concomitant]
     Route: 065
  8. TAMSULOSIN HCL [Concomitant]
     Route: 065
  9. SIMVASTATIN [Concomitant]
     Route: 065
  10. CARBAMAZEPINE [Concomitant]
     Route: 065
  11. ASPIRIN [Concomitant]
     Route: 065
  12. THYRONAJOD [Concomitant]
     Route: 065
  13. TARGIN [Concomitant]
     Route: 065

REACTIONS (4)
  - INCORRECT DOSE ADMINISTERED [None]
  - DRUG PRESCRIBING ERROR [None]
  - CARDIOVASCULAR DISORDER [None]
  - NAUSEA [None]
